FAERS Safety Report 24878379 (Version 1)
Quarter: 2025Q1

REPORT INFORMATION
  Report Type: Spontaneous
  Country: CA (occurrence: CA)
  Receive Date: 20250123
  Receipt Date: 20250123
  Transmission Date: 20250409
  Serious: Yes (Hospitalization, Other)
  Sender: PFIZER
  Company Number: CA-MYLANLABS-2025M1004181

PATIENT
  Sex: Male

DRUGS (2)
  1. CADUET [Interacting]
     Active Substance: AMLODIPINE BESYLATE\ATORVASTATIN CALCIUM
     Route: 065
  2. GRAPEFRUIT [Interacting]
     Active Substance: GRAPEFRUIT
     Route: 065

REACTIONS (4)
  - Drug interaction [Unknown]
  - Confusional state [Unknown]
  - Pollakiuria [Unknown]
  - Vomiting [Unknown]
